FAERS Safety Report 12269398 (Version 1)
Quarter: 2016Q2

REPORT INFORMATION
  Report Type: Report from Study
  Country: PK (occurrence: PK)
  Receive Date: 20160414
  Receipt Date: 20160414
  Transmission Date: 20160815
  Serious: Yes (Other)
  Sender: FDA-Public Use
  Company Number: PHHY2016PK037629

PATIENT
  Age: 62 Year
  Sex: Female

DRUGS (6)
  1. CO-DIOVAN [Suspect]
     Active Substance: HYDROCHLOROTHIAZIDE\VALSARTAN
     Dosage: 1 DF, (HYDROCHLOROTHIAZIDE 12.5 MG, VALSARTAN 80 MG) (IN THE MORNING)
     Route: 048
     Dates: start: 20160112
  2. CONCOR [Concomitant]
     Active Substance: BISOPROLOL FUMARATE
     Indication: HYPERTENSION
     Dosage: 1 DF, QD
     Route: 048
     Dates: start: 20160112
  3. NIACIN. [Concomitant]
     Active Substance: NIACIN
     Indication: PRODUCT USED FOR UNKNOWN INDICATION
     Route: 065
  4. CO-DIOVAN [Suspect]
     Active Substance: HYDROCHLOROTHIAZIDE\VALSARTAN
     Indication: HYPERTENSION
     Dosage: 1 DF, QD (HYDROCHLOROTHIAZIDE 12.5 MG, VALSARTAN 80 MG) (IN MORNING)
     Route: 048
     Dates: start: 20130612
  5. ASCARD [Concomitant]
     Indication: CIRCULATING ANTICOAGULANT
     Dosage: 1 DF, QD
     Route: 048
     Dates: start: 20160112
  6. DIOVAN [Suspect]
     Active Substance: VALSARTAN
     Indication: PRODUCT USED FOR UNKNOWN INDICATION
     Dosage: 80 MG,  (AT NIGHT)
     Route: 065
     Dates: start: 20130612, end: 201508

REACTIONS (10)
  - Fatigue [Unknown]
  - Musculoskeletal pain [Not Recovered/Not Resolved]
  - High density lipoprotein decreased [Unknown]
  - Non-high-density lipoprotein cholesterol increased [Unknown]
  - Renal failure [Unknown]
  - Asthenia [Unknown]
  - Rhabdomyolysis [Unknown]
  - Aggression [Not Recovered/Not Resolved]
  - Myalgia [Unknown]
  - Blood pressure increased [Unknown]

NARRATIVE: CASE EVENT DATE: 20160302
